FAERS Safety Report 6026757-4 (Version None)
Quarter: 2009Q1

REPORT INFORMATION
  Report Type: 
  Country: None (occurrence: None)
  Receive Date: 20090105
  Receipt Date: 20081223
  Transmission Date: 20090719
  Serious: Yes (Other)
  Sender: FDA-Public Use
  Company Number: US-JNJFOC-20081101129

PATIENT
  Sex: Female
  Weight: 99.27 kg

DRUGS (5)
  1. DORIBAX [Suspect]
     Indication: PSEUDOCYST
     Route: 042
  2. DORIBAX [Suspect]
     Indication: PANCREATIC NECROSIS
     Route: 042
  3. ENOXAPANN [Concomitant]
     Indication: THROMBOSIS PROPHYLAXIS
     Route: 058
  4. LISINOPRIL [Concomitant]
     Indication: HYPERTENSION
     Route: 065
  5. WARFARIN SODIUM [Concomitant]
     Indication: ARRHYTHMIA PROPHYLAXIS
     Dosage: 5 MG X 1 AND 7MG X 1
     Route: 065

REACTIONS (1)
  - HYPERSENSITIVITY [None]
